FAERS Safety Report 9469600 (Version 2)
Quarter: 2013Q3

REPORT INFORMATION
  Report Type: Spontaneous
  Country: US (occurrence: US)
  Receive Date: 20130822
  Receipt Date: 20130903
  Transmission Date: 20140515
  Serious: Yes (Death)
  Sender: FDA-Public Use
  Company Number: US-BRISTOL-MYERS SQUIBB COMPANY-19198811

PATIENT
  Age: 62 Year
  Sex: Male

DRUGS (1)
  1. ORENCIA FOR INJ 250 MG/VIAL [Suspect]
     Dosage: INF,LAST INF:11FEB13.
     Route: 042

REACTIONS (2)
  - Fall [Fatal]
  - Head injury [Fatal]
